FAERS Safety Report 6496750-6 (Version None)
Quarter: 2009Q4

REPORT INFORMATION
  Report Type: 
  Country: None (occurrence: None)
  Receive Date: 20091211
  Receipt Date: 20091201
  Transmission Date: 20100525
  Serious: Yes (Death, Hospitalization)
  Sender: FDA-Public Use
  Company Number: 052

PATIENT
  Age: 80 Year
  Sex: Male
  Weight: 78.4723 kg

DRUGS (12)
  1. FAZACLO ODT [Suspect]
     Indication: SCHIZOPHRENIA
     Dosage: 25 MG PO BID
     Route: 048
     Dates: start: 20051209, end: 20060424
  2. ZANTAC [Concomitant]
  3. CAPOTEN [Concomitant]
  4. ISORDIL [Concomitant]
  5. LIPITOR [Concomitant]
  6. LASIX [Concomitant]
  7. ASPIRIN [Concomitant]
  8. AVANDIA [Concomitant]
  9. METFORMIN [Concomitant]
  10. PROZAC [Concomitant]
  11. COGENTIN [Concomitant]
  12. SENNA [Concomitant]

REACTIONS (3)
  - ABNORMAL BEHAVIOUR [None]
  - AGITATION [None]
  - MYOCARDIAL INFARCTION [None]
